FAERS Safety Report 7081418-8 (Version None)
Quarter: 2010Q4

REPORT INFORMATION
  Report Type: 
  Country: None (occurrence: None)
  Receive Date: 20101102
  Receipt Date: 20101102
  Transmission Date: 20110411
  Serious: No
  Sender: FDA-Public Use
  Company Number: None

PATIENT
  Age: 46 Year
  Sex: Male

DRUGS (2)
  1. BACTRIM [Suspect]
     Indication: PNEUMOCYSTIS JIROVECI PNEUMONIA
     Dosage: ONE TABLET DAILY PO
     Route: 048
  2. BACTRIM [Suspect]
     Indication: PROPHYLAXIS
     Dosage: ONE TABLET DAILY PO
     Route: 048

REACTIONS (1)
  - RASH ERYTHEMATOUS [None]
